FAERS Safety Report 4723305-3 (Version None)
Quarter: 2005Q3

REPORT INFORMATION
  Report Type: 
  Country: None (occurrence: None)
  Receive Date: 20050725
  Receipt Date: 20050330
  Transmission Date: 20060218
  Serious: No
  Sender: FDA-Public Use
  Company Number: US-BRISTOL-MYERS SQUIBB COMPANY-12916177

PATIENT
  Age: 80 Year
  Sex: Male

DRUGS (2)
  1. DOVONEX [Suspect]
     Indication: PSORIASIS
     Dosage: USED PRODUCT FOR ^MANY YEARS^
     Route: 061
  2. CLOBETASOL [Concomitant]

REACTIONS (2)
  - LACRIMATION INCREASED [None]
  - PRURITUS [None]
